FAERS Safety Report 23878735 (Version 2)
Quarter: 2024Q2

REPORT INFORMATION
  Report Type: Spontaneous
  Country: JP (occurrence: JP)
  Receive Date: 20240521
  Receipt Date: 20240628
  Transmission Date: 20240716
  Serious: Yes (Other)
  Sender: FDA-Public Use
  Company Number: JP-BAYER-2024A072669

PATIENT
  Age: 42 Year
  Sex: Male

DRUGS (2)
  1. EYLEA HD [Suspect]
     Active Substance: AFLIBERCEPT
     Indication: Diabetic retinal oedema
     Dosage: 8 MG, ONCE (BOTH EYES); SOLUTION FOR INJECTION; 114.3 MG/ML
     Route: 031
     Dates: start: 20240515, end: 20240515
  2. EYLEA HD [Suspect]
     Active Substance: AFLIBERCEPT
     Dosage: UNK, ONCE; SOLUTION FOR INJECTION; 114.3 MG/ML
     Route: 031

REACTIONS (3)
  - Neurogenic shock [Recovered/Resolved]
  - Syncope [Recovered/Resolved]
  - Visual impairment [Recovering/Resolving]

NARRATIVE: CASE EVENT DATE: 20240515
